FAERS Safety Report 11984893 (Version 1)
Quarter: 2016Q1

REPORT INFORMATION
  Report Type: Spontaneous
  Country: IT (occurrence: IT)
  Receive Date: 20160201
  Receipt Date: 20160201
  Transmission Date: 20160526
  Serious: Yes (Hospitalization)
  Sender: FDA-Public Use
  Company Number: IT-PFIZER INC-2016047677

PATIENT
  Age: 81 Year
  Sex: Female

DRUGS (4)
  1. METRONIDAZOLE. [Suspect]
     Active Substance: METRONIDAZOLE
     Indication: COLONIC ABSCESS
     Dosage: 1500 MG, DAILY
     Route: 042
     Dates: start: 20160104, end: 20160114
  2. LANSOPRAZOLE. [Concomitant]
     Active Substance: LANSOPRAZOLE
     Dosage: 15 MG, UNK
     Route: 048
  3. FOSICOMBI [Concomitant]
     Active Substance: FOSINOPRIL SODIUM\HYDROCHLOROTHIAZIDE
     Dosage: UNK
     Route: 048
  4. TAZOCIN [Suspect]
     Active Substance: PIPERACILLIN SODIUM\TAZOBACTAM SODIUM
     Indication: COLONIC ABSCESS
     Dosage: 18 G, DAILY
     Route: 042
     Dates: start: 20160104, end: 20160114

REACTIONS (1)
  - Acute generalised exanthematous pustulosis [Recovered/Resolved]

NARRATIVE: CASE EVENT DATE: 20160111
